FAERS Safety Report 7031108-2 (Version None)
Quarter: 2010Q4

REPORT INFORMATION
  Report Type: 
  Country: None (occurrence: None)
  Receive Date: 20101001
  Receipt Date: 20100921
  Transmission Date: 20110411
  Serious: Yes (Hospitalization)
  Sender: FDA-Public Use
  Company Number: 011158

PATIENT
  Age: 59 Year
  Sex: Female

DRUGS (3)
  1. CILOSTAZOL [Suspect]
     Indication: ANGIOPATHY
     Dosage: ORAL
     Route: 048
  2. WARFARIN POTASSIUM (WARFARIN POTASSIUM) UNKNOWN [Suspect]
     Indication: ANGIOPATHY
     Dosage: ORAL
     Route: 048
  3. ASPIRIN [Suspect]
     Indication: ANGIOPATHY
     Dosage: ORAL
     Route: 048

REACTIONS (3)
  - FLANK PAIN [None]
  - POST PROCEDURAL HAEMATOMA [None]
  - VOMITING [None]
